FAERS Safety Report 8969692 (Version 1)
Quarter: 2012Q4

REPORT INFORMATION
  Report Type: 
  Country: US (occurrence: US)
  Receive Date: 20121218
  Receipt Date: 20121218
  Transmission Date: 20130627
  Serious: No
  Sender: FDA-Public Use
  Company Number: US-BRISTOL-MYERS SQUIBB COMPANY-16566994

PATIENT
  Age: 11 Year
  Sex: Male

DRUGS (1)
  1. ABILIFY TABS 30 MG [Suspect]
     Indication: BIPOLAR DISORDER
     Dosage: Intial dose-20mg.dose increased to 30mg

REACTIONS (3)
  - Nausea [Recovered/Resolved]
  - Vomiting [Recovered/Resolved]
  - Drug ineffective [Unknown]
